FAERS Safety Report 9739486 (Version 3)
Quarter: 2014Q1

REPORT INFORMATION
  Report Type: Spontaneous
  Country: IE (occurrence: IE)
  Receive Date: 20131209
  Receipt Date: 20140303
  Transmission Date: 20141002
  Serious: Yes (Hospitalization)
  Sender: FDA-Public Use
  Company Number: PHFR2013IE006185

PATIENT
  Age: 52 Year
  Sex: Female
  Weight: 106 kg

DRUGS (9)
  1. CLOZARIL [Suspect]
     Indication: SCHIZOPHRENIA
     Dosage: 275 MG, QD, ONCE DAILY
     Route: 048
     Dates: start: 20131002, end: 20131015
  2. SODIUM VALPROATE [Concomitant]
     Indication: AFFECTIVE DISORDER
     Dosage: 1200 MG, DAILY
     Route: 048
  3. ELTROXIN [Concomitant]
     Indication: HYPOTHYROIDISM
     Dosage: 50 UG, DAILY
     Route: 048
  4. LANSOPRAZOL [Concomitant]
     Indication: GASTROOESOPHAGEAL REFLUX DISEASE
     Dosage: 30 MG, QD
  5. OLANZAPINE [Concomitant]
     Indication: SCHIZOPHRENIA
     Dosage: 20 MG, DAILY
     Route: 048
  6. PROCYCLIDINE [Concomitant]
     Indication: CHOLINERGIC SYNDROME
     Dosage: 2.5 MG, QD
     Route: 048
  7. KWELLS [Concomitant]
     Indication: SALIVARY HYPERSECRETION
     Dosage: UNK UKN, BID
     Route: 048
  8. ZUCLOPENTHIXOL [Concomitant]
     Dosage: 300 MG, QW
     Route: 030
  9. AMISULPRIDE [Concomitant]
     Indication: BLOOD PROLACTIN INCREASED
     Dosage: UNK

REACTIONS (6)
  - Oropharyngeal pain [Recovered/Resolved]
  - Dysarthria [Recovering/Resolving]
  - Pneumonia [Recovered/Resolved]
  - C-reactive protein increased [Recovered/Resolved]
  - Salivary hypersecretion [Recovered/Resolved]
  - Heart rate increased [Recovered/Resolved]
